FAERS Safety Report 4295364-6 (Version None)
Quarter: 2004Q1

REPORT INFORMATION
  Report Type: 
  Country: None (occurrence: None)
  Receive Date: 20040216
  Receipt Date: 20030626
  Transmission Date: 20041129
  Serious: No
  Sender: FDA-Public Use
  Company Number: US-GLAXOSMITHKLINE-A0414570A

PATIENT
  Age: 48 Year
  Sex: Female

DRUGS (3)
  1. LAMICTAL [Suspect]
     Dosage: 700MG PER DAY
     Route: 048
  2. KLONOPIN [Concomitant]
  3. ZOLOFT [Concomitant]

REACTIONS (2)
  - RETCHING [None]
  - VOMITING [None]
